FAERS Safety Report 4990340-X (Version None)
Quarter: 2006Q2

REPORT INFORMATION
  Report Type: 
  Country: None (occurrence: None)
  Receive Date: 20060502
  Receipt Date: 20060502
  Transmission Date: 20061013
  Serious: Yes (Hospitalization)
  Sender: FDA-Public Use
  Company Number: None

PATIENT
  Sex: Female
  Weight: 57 kg

DRUGS (2)
  1. OXALIPLATIN 50 MG/M2 IV Q WEEK X5 [Suspect]
     Indication: RECTAL CANCER
     Dosage: 80 MG Q WEEK X5 IV
     Route: 042
     Dates: start: 20060104, end: 20060201
  2. CAPECITABINE 725 MG/M2 PO BID MON-FRI. X 28 DAYS [Suspect]
     Indication: RECTAL CANCER
     Dosage: 1150 MG PO BID PO
     Route: 048
     Dates: start: 20060104, end: 20060130

REACTIONS (16)
  - ABSCESS [None]
  - ASTHENIA [None]
  - BLOODY DISCHARGE [None]
  - BODY TEMPERATURE INCREASED [None]
  - COMPUTERISED TOMOGRAM ABNORMAL [None]
  - DEHYDRATION [None]
  - DYSURIA [None]
  - EATING DISORDER [None]
  - ILEUS [None]
  - NAUSEA [None]
  - POST PROCEDURAL COMPLICATION [None]
  - SMALL INTESTINAL OBSTRUCTION [None]
  - TREMOR [None]
  - VAGINAL DISCHARGE [None]
  - VAGINAL HAEMORRHAGE [None]
  - VOMITING [None]
